FAERS Safety Report 4347043-4 (Version None)
Quarter: 2004Q1

REPORT INFORMATION
  Report Type: 
  Country: None (occurrence: None)
  Receive Date: 20040329
  Receipt Date: 20040216
  Transmission Date: 20041129
  Serious: No
  Sender: FDA-Public Use
  Company Number: USA040259453

PATIENT
  Age: 5 Year
  Sex: Male
  Weight: 24 kg

DRUGS (3)
  1. STRATTERA [Suspect]
     Indication: ATTENTION DEFICIT/HYPERACTIVITY DISORDER
     Dosage: 30 MG/DAILY DAY
     Dates: start: 20030901, end: 20040101
  2. SINGULAIR [Concomitant]
  3. PULMOCORTISON INY [Concomitant]

REACTIONS (5)
  - DRY MOUTH [None]
  - FATIGUE [None]
  - IRRITABILITY [None]
  - PAIN IN EXTREMITY [None]
  - POLYDIPSIA [None]
